FAERS Safety Report 6984570-5 (Version None)
Quarter: 2010Q3

REPORT INFORMATION
  Report Type: 
  Country: None (occurrence: None)
  Receive Date: 20100915
  Receipt Date: 20100903
  Transmission Date: 20110219
  Serious: Yes (Other)
  Sender: FDA-Public Use
  Company Number: US-PFIZER INC-2010112852

PATIENT
  Sex: Male

DRUGS (1)
  1. GEODON [Suspect]
     Dosage: 50MG/DAY
     Route: 030

REACTIONS (3)
  - AGGRESSION [None]
  - AGITATION [None]
  - INTENTIONAL OVERDOSE [None]
